FAERS Safety Report 9154953 (Version 1)
Quarter: 2013Q1

REPORT INFORMATION
  Report Type: Spontaneous
  Country: US (occurrence: None)
  Receive Date: 20130305
  Receipt Date: 20130305
  Transmission Date: 20140127
  Serious: Yes (Other)
  Sender: FDA-Public Use
  Company Number: None

PATIENT
  Age: 67 Year
  Sex: Female

DRUGS (1)
  1. STIVARGA 40 MG BAYER [Suspect]
     Route: 048
     Dates: start: 20130207, end: 20130227

REACTIONS (4)
  - Rash [None]
  - Diarrhoea [None]
  - Muscle spasms [None]
  - Palmar-plantar erythrodysaesthesia syndrome [None]
